FAERS Safety Report 24383045 (Version 1)
Quarter: 2024Q4

REPORT INFORMATION
  Report Type: Spontaneous
  Country: SE (occurrence: SE)
  Receive Date: 20241001
  Receipt Date: 20241001
  Transmission Date: 20250115
  Serious: Yes (Life-Threatening, Hospitalization, Disabling)
  Sender: PFIZER
  Company Number: None

PATIENT
  Age: 33 Year
  Sex: Female
  Weight: 145 kg

DRUGS (2)
  1. NAFARELIN ACETATE [Suspect]
     Active Substance: NAFARELIN ACETATE
     Indication: Endometriosis
     Dosage: 200 UG, 2X/DAY
     Route: 045
     Dates: start: 20231120, end: 20240422
  2. ENALAPRIL [Concomitant]
     Active Substance: ENALAPRIL
     Dosage: 10 MG, 1X/DAY
     Route: 048
     Dates: start: 20160430

REACTIONS (3)
  - Suicidal ideation [Recovered/Resolved with Sequelae]
  - Suicide attempt [Recovered/Resolved with Sequelae]
  - Major depression [Recovered/Resolved with Sequelae]

NARRATIVE: CASE EVENT DATE: 20231229
